FAERS Safety Report 15104225 (Version 3)
Quarter: 2018Q3

REPORT INFORMATION
  Report Type: Spontaneous
  Country: JP (occurrence: JP)
  Receive Date: 20180703
  Receipt Date: 20180813
  Transmission Date: 20181010
  Serious: Yes (Death)
  Sender: FDA-Public Use
  Company Number: JP-JNJFOC-20180636191

PATIENT
  Age: 93 Year
  Sex: Male
  Weight: 67.9 kg

DRUGS (12)
  1. DIASTASE [Concomitant]
     Active Substance: DIASTASE
     Route: 048
  2. SAMTIREL [Concomitant]
     Active Substance: ATOVAQUONE
     Route: 048
  3. NEXIUM [Concomitant]
     Active Substance: ESOMEPRAZOLE MAGNESIUM
     Route: 048
     Dates: start: 2013, end: 20180624
  4. MAGMITT [Concomitant]
     Active Substance: MAGNESIUM OXIDE
     Route: 048
  5. IMBRUVICA [Suspect]
     Active Substance: IBRUTINIB
     Indication: MANTLE CELL LYMPHOMA
     Route: 048
     Dates: start: 20180611, end: 20180618
  6. IMBRUVICA [Suspect]
     Active Substance: IBRUTINIB
     Indication: MANTLE CELL LYMPHOMA
     Route: 048
     Dates: start: 20180619, end: 20180624
  7. EQUA [Concomitant]
     Active Substance: VILDAGLIPTIN
     Indication: DIABETES MELLITUS
     Route: 048
     Dates: end: 20180624
  8. ZYLORIC [Concomitant]
     Active Substance: ALLOPURINOL
     Route: 048
     Dates: start: 2013, end: 20180624
  9. MUCOSTA [Concomitant]
     Active Substance: REBAMIPIDE
     Route: 065
  10. TALION [Concomitant]
     Active Substance: BEPOTASTINE
     Route: 048
     Dates: end: 20180624
  11. ALLOPURINOL. [Concomitant]
     Active Substance: ALLOPURINOL
     Route: 048
     Dates: end: 20180624
  12. URSO [Concomitant]
     Active Substance: URSODIOL
     Route: 048

REACTIONS (1)
  - Brain stem haemorrhage [Fatal]

NARRATIVE: CASE EVENT DATE: 20180624
